FAERS Safety Report 17963519 (Version 1)
Quarter: 2020Q2

REPORT INFORMATION
  Report Type: Spontaneous
  Country: US (occurrence: US)
  Receive Date: 20200630
  Receipt Date: 20200630
  Transmission Date: 20200714
  Serious: No
  Sender: FDA-Public Use
  Company Number: US-PFIZER INC-2020243215

PATIENT
  Age: 2 Year
  Sex: Female
  Weight: 9.07 kg

DRUGS (2)
  1. GENOTROPIN [Suspect]
     Active Substance: SOMATROPIN
     Indication: GROWTH DISORDER
     Dosage: UNK, 1X/DAY (0.4 NIGHTLY)
  2. GENOTROPIN [Suspect]
     Active Substance: SOMATROPIN
     Indication: GROWTH DISORDER
     Dosage: UNK, 1X/DAY (0.4 NIGHTLY)

REACTIONS (3)
  - Device breakage [Unknown]
  - Product dose omission [Unknown]
  - Device leakage [Unknown]
